FAERS Safety Report 9203565 (Version 4)
Quarter: 2013Q2

REPORT INFORMATION
  Report Type: Spontaneous
  Country: JP (occurrence: JP)
  Receive Date: 20130402
  Receipt Date: 20130614
  Transmission Date: 20140414
  Serious: Yes (Hospitalization, Other)
  Sender: FDA-Public Use
  Company Number: PHHY2013JP028736

PATIENT
  Age: 21 Year
  Sex: Male

DRUGS (6)
  1. AFINITOR [Suspect]
     Dosage: 10 MG, DAILY
     Route: 048
     Dates: start: 20130315, end: 20130316
  2. AFINITOR [Interacting]
     Dosage: 10 MG, DAILY
     Route: 048
     Dates: start: 20130319
  3. HYDANTOL [Interacting]
     Dosage: 25 MG
  4. ALEVIATIN [Interacting]
     Dosage: 200 MG
     Route: 048
  5. PHENOBARBITAL [Concomitant]
     Dosage: 90 MG
     Route: 048
  6. PHENOBARBITAL [Concomitant]
     Dosage: 90 MG
     Route: 048

REACTIONS (6)
  - Status epilepticus [Recovered/Resolved]
  - Concomitant disease aggravated [Recovering/Resolving]
  - Epilepsy [Recovered/Resolved]
  - Pyrexia [Recovered/Resolved]
  - Constipation [Recovered/Resolved]
  - Agitation [Recovered/Resolved]
